FAERS Safety Report 23434133 (Version 2)
Quarter: 2025Q3

REPORT INFORMATION
  Report Type: Spontaneous
  Country: EU (occurrence: EU)
  Receive Date: 20240123
  Receipt Date: 20250811
  Transmission Date: 20251021
  Serious: Yes (Other)
  Sender: MYLAN
  Company Number: EU-HAMELN-2023HAM001558

PATIENT
  Age: 31 Year
  Sex: Male

DRUGS (16)
  1. PANTOPRAZOLE [Suspect]
     Active Substance: PANTOPRAZOLE
     Indication: Product used for unknown indication
  2. PANTOPRAZOLE [Suspect]
     Active Substance: PANTOPRAZOLE
     Route: 065
  3. PANTOPRAZOLE [Suspect]
     Active Substance: PANTOPRAZOLE
     Route: 065
  4. PANTOPRAZOLE [Suspect]
     Active Substance: PANTOPRAZOLE
  5. KETAMINE [Suspect]
     Active Substance: KETAMINE
     Indication: Product used for unknown indication
  6. KETAMINE [Suspect]
     Active Substance: KETAMINE
     Route: 065
  7. KETAMINE [Suspect]
     Active Substance: KETAMINE
     Route: 065
  8. KETAMINE [Suspect]
     Active Substance: KETAMINE
  9. AMPHETAMINE [Suspect]
     Active Substance: AMPHETAMINE
     Indication: Product used for unknown indication
  10. AMPHETAMINE [Suspect]
     Active Substance: AMPHETAMINE
     Route: 065
  11. AMPHETAMINE [Suspect]
     Active Substance: AMPHETAMINE
     Route: 065
  12. AMPHETAMINE [Suspect]
     Active Substance: AMPHETAMINE
  13. CANNABIS SATIVA SUBSP. INDICA TOP [Suspect]
     Active Substance: CANNABIS SATIVA SUBSP. INDICA TOP
     Indication: Product used for unknown indication
  14. CANNABIS SATIVA SUBSP. INDICA TOP [Suspect]
     Active Substance: CANNABIS SATIVA SUBSP. INDICA TOP
     Route: 065
  15. CANNABIS SATIVA SUBSP. INDICA TOP [Suspect]
     Active Substance: CANNABIS SATIVA SUBSP. INDICA TOP
     Route: 065
  16. CANNABIS SATIVA SUBSP. INDICA TOP [Suspect]
     Active Substance: CANNABIS SATIVA SUBSP. INDICA TOP

REACTIONS (16)
  - Drug abuse [Unknown]
  - Pupillary reflex impaired [Unknown]
  - Thinking abnormal [Unknown]
  - Gait disturbance [Unknown]
  - Dysarthria [Unknown]
  - Mood altered [Unknown]
  - Mydriasis [Unknown]
  - Disturbance in attention [Unknown]
  - Irritability [Unknown]
  - Conjunctival hyperaemia [Unknown]
  - Blepharospasm [Unknown]
  - Aggression [Unknown]
  - Tension [Unknown]
  - Hyperhidrosis [Unknown]
  - Vertigo [Unknown]
  - Dizziness [Unknown]
